FAERS Safety Report 5001988-0 (Version None)
Quarter: 2006Q2

REPORT INFORMATION
  Report Type: 
  Country: None (occurrence: None)
  Receive Date: 20060515
  Receipt Date: 20051019
  Transmission Date: 20061013
  Serious: Yes (Hospitalization, Other)
  Sender: FDA-Public Use
  Company Number: US-MERCK-0510USA08288

PATIENT
  Age: 72 Year
  Sex: Female
  Weight: 85 kg

DRUGS (12)
  1. VIOXX [Suspect]
     Route: 048
     Dates: start: 20000101, end: 20030101
  2. KLOR-CON [Concomitant]
     Route: 065
  3. DIOVAN [Concomitant]
     Route: 065
  4. LIPITOR [Concomitant]
     Route: 065
  5. HYDROCODONE HYDROCHLORIDE [Concomitant]
     Route: 065
  6. PREMARIN [Concomitant]
     Route: 065
  7. AMITRIPTYLINE HYDROCHLORIDE [Concomitant]
     Route: 065
  8. METOPROLOL [Concomitant]
     Route: 065
  9. PACERONE [Concomitant]
     Route: 065
  10. NASONEX [Concomitant]
     Route: 065
  11. CELEBREX [Concomitant]
     Route: 065
  12. COUMADIN [Concomitant]
     Route: 065

REACTIONS (6)
  - ARTHROPATHY [None]
  - CARDIAC DISORDER [None]
  - CARDIAC FIBRILLATION [None]
  - MYOCARDIAL INFARCTION [None]
  - PAIN [None]
  - VOMITING [None]
